FAERS Safety Report 24213250 (Version 1)
Quarter: 2024Q3

REPORT INFORMATION
  Report Type: Spontaneous
  Country: US (occurrence: None)
  Receive Date: 20240814
  Receipt Date: 20240814
  Transmission Date: 20241016
  Serious: Yes (Death, Hospitalization)
  Sender: Public
  Company Number: None

PATIENT
  Age: 77 Year
  Sex: Female

DRUGS (5)
  1. OPSUMIT [Suspect]
     Active Substance: MACITENTAN
     Indication: Pulmonary arterial hypertension
     Dosage: FREQUENCY : DAILY;?
     Route: 048
     Dates: start: 20240209, end: 20240729
  2. METOPROLOL [Concomitant]
     Active Substance: METOPROLOL
  3. FAMOTIDINE [Concomitant]
     Active Substance: FAMOTIDINE
  4. FERROUS SULFATE [Concomitant]
     Active Substance: FERROUS SULFATE
  5. CALCIUM CARBONATE [Concomitant]
     Active Substance: CALCIUM CARBONATE

REACTIONS (3)
  - Dyspnoea [None]
  - Aspiration [None]
  - Cardiac arrest [None]

NARRATIVE: CASE EVENT DATE: 20240727
